FAERS Safety Report 7167233-5 (Version None)
Quarter: 2010Q4

REPORT INFORMATION
  Report Type: 
  Country: None (occurrence: None)
  Receive Date: 20101213
  Receipt Date: 20101213
  Transmission Date: 20110411
  Serious: Yes (Hospitalization, Other)
  Sender: FDA-Public Use
  Company Number: None

PATIENT
  Age: 51 Year
  Sex: Female
  Weight: 111.1313 kg

DRUGS (1)
  1. MOBIC [Suspect]
     Indication: SPINAL OSTEOARTHRITIS
     Dosage: ONE-HALF TO ONE TABLET EVERY DAY PO
     Route: 048
     Dates: start: 20091130, end: 20101130

REACTIONS (10)
  - BLOOD PRESSURE INCREASED [None]
  - BRONCHITIS [None]
  - CHEST PAIN [None]
  - CRYING [None]
  - DIZZINESS [None]
  - DRUG DISPENSING ERROR [None]
  - INCORRECT DOSE ADMINISTERED [None]
  - LABORATORY TEST ABNORMAL [None]
  - TINNITUS [None]
  - TREMOR [None]
